FAERS Safety Report 4368156-7 (Version None)
Quarter: 2004Q2

REPORT INFORMATION
  Report Type: 
  Country: None (occurrence: None)
  Receive Date: 20040602
  Receipt Date: 20040521
  Transmission Date: 20050107
  Serious: Yes (Other)
  Sender: FDA-Public Use
  Company Number: PHBS2004ZA06742

PATIENT
  Sex: Female

DRUGS (3)
  1. CO-DIOVAN [Suspect]
  2. THYROID TAB [Concomitant]
  3. ANAESTHETICS [Concomitant]
     Dates: start: 20040521

REACTIONS (1)
  - ARRHYTHMIA [None]
